FAERS Safety Report 22201573 (Version 1)
Quarter: 2023Q2

REPORT INFORMATION
  Report Type: Spontaneous
  Country: LT (occurrence: None)
  Receive Date: 20230412
  Receipt Date: 20230412
  Transmission Date: 20230721
  Serious: Yes (Other)
  Sender: FDA-Public Use
  Company Number: 2023A078047

PATIENT
  Sex: Female

DRUGS (6)
  1. OMEPRAZOLE [Interacting]
     Active Substance: OMEPRAZOLE
  2. HYDROXYCHLOROQUINE [Suspect]
     Active Substance: HYDROXYCHLOROQUINE
     Indication: COVID-19
     Dosage: 10 DAYS OF ORAL HYDROXYCHLOROQUINE 200 MG THREE TIMES DAILY
  3. SERTRALINE [Interacting]
     Active Substance: SERTRALINE HYDROCHLORIDE
  4. AZITHROMYCIN [Suspect]
     Active Substance: AZITHROMYCIN
     Indication: COVID-19
     Dosage: 5 DAYS OF ORAL AZITHROMYCIN (ONCE DAILY; INITIAL DOSE 500 MG ON THE FIRST DAY FOLLOWED BY 250 MG ...
  5. DASATINIB [Interacting]
     Active Substance: DASATINIB
  6. METOCLOPRAMIDE [Interacting]
     Active Substance: METOCLOPRAMIDE

REACTIONS (1)
  - Electrocardiogram QT prolonged [Unknown]
